FAERS Safety Report 11490806 (Version 2)
Quarter: 2016Q4

REPORT INFORMATION
  Report Type: Spontaneous
  Country: US (occurrence: US)
  Receive Date: 20150910
  Receipt Date: 20161111
  Transmission Date: 20170206
  Serious: Yes (Other)
  Sender: FDA-Public Use
  Company Number: US-ELI_LILLY_AND_COMPANY-US201509001392

PATIENT
  Age: 38 Year
  Sex: Female

DRUGS (1)
  1. CYMBALTA [Suspect]
     Active Substance: DULOXETINE HYDROCHLORIDE
     Indication: PRODUCT USED FOR UNKNOWN INDICATION
     Dosage: UNK, UNKNOWN
     Route: 065
     Dates: end: 20110722

REACTIONS (23)
  - Drug withdrawal syndrome [Unknown]
  - Disorientation [Unknown]
  - Dysphoria [Unknown]
  - Confusional state [Unknown]
  - Mood swings [Unknown]
  - Insomnia [Unknown]
  - Nightmare [Unknown]
  - Suicidal ideation [Unknown]
  - Anxiety [Unknown]
  - Dissociative disorder [Unknown]
  - Agitation [Unknown]
  - Vertigo [Unknown]
  - Paraesthesia [Recovering/Resolving]
  - Fatigue [Unknown]
  - Irritability [Unknown]
  - Nausea [Unknown]
  - Dizziness [Unknown]
  - Sleep disorder [Unknown]
  - Thinking abnormal [Unknown]
  - Limb injury [Unknown]
  - Sensory disturbance [Unknown]
  - Lethargy [Unknown]
  - Headache [Unknown]

NARRATIVE: CASE EVENT DATE: 20110723
